FAERS Safety Report 5658133-8 (Version None)
Quarter: 2008Q1

REPORT INFORMATION
  Report Type: 
  Country: None (occurrence: None)
  Receive Date: 20080310
  Receipt Date: 20070214
  Transmission Date: 20080703
  Serious: No
  Sender: FDA-Public Use
  Company Number: US-BAYER-200615070BCC

PATIENT
  Age: 89 Year
  Sex: Female
  Weight: 69 kg

DRUGS (3)
  1. ALEVE [Suspect]
     Indication: ARTHRITIS
     Dosage: TOTAL DAILY DOSE: 220 MG  UNIT DOSE: 220 MG
     Route: 048
     Dates: start: 20061211
  2. HEART MEDICINE [Concomitant]
  3. THYROID MEDICINE [Concomitant]

REACTIONS (2)
  - EYE SWELLING [None]
  - JOINT SWELLING [None]
